FAERS Safety Report 4707465-6 (Version None)
Quarter: 2005Q3

REPORT INFORMATION
  Report Type: 
  Country: None (occurrence: None)
  Receive Date: 20050706
  Receipt Date: 20050705
  Transmission Date: 20060218
  Serious: Yes (Hospitalization)
  Sender: FDA-Public Use
  Company Number: US-GLAXOSMITHKLINE-A0564946A

PATIENT
  Age: 70 Year
  Sex: Female

DRUGS (7)
  1. AVANDIA [Suspect]
     Dosage: 4MG TWICE PER DAY
     Route: 048
     Dates: end: 20050601
  2. METFORMIN [Suspect]
     Route: 048
  3. GLYBURIDE [Concomitant]
  4. METOPROLOL [Concomitant]
  5. LIPITOR [Concomitant]
  6. BENICAR [Concomitant]
  7. ASPIRIN [Concomitant]

REACTIONS (6)
  - CARDIAC OPERATION [None]
  - HEADACHE [None]
  - LOCAL SWELLING [None]
  - PULMONARY OEDEMA [None]
  - SWELLING [None]
  - WEIGHT INCREASED [None]
